FAERS Safety Report 9353194 (Version 2)
Quarter: 2013Q2

REPORT INFORMATION
  Report Type: Spontaneous
  Country: US (occurrence: None)
  Receive Date: 20130612
  Receipt Date: 20130619
  Transmission Date: 20140414
  Serious: Yes (Hospitalization)
  Sender: FDA-Public Use
  Company Number: JPI-P-032604

PATIENT
  Age: 53 Year
  Sex: Male
  Weight: 120.2 kg

DRUGS (10)
  1. XYREM [Suspect]
     Indication: CATAPLEXY
     Route: 048
     Dates: start: 20100804
  2. METHYLPHENIDATE [Suspect]
     Indication: NARCOLEPSY
  3. ANTI DEPRESSANT [Suspect]
     Indication: PRODUCT USED FOR UNKNOWN INDICATION
     Dates: start: 2012, end: 2012
  4. METFORMIN [Concomitant]
  5. GLYBURIDE [Concomitant]
  6. LEVOTHYROXINE [Concomitant]
  7. LISINOPRIL [Concomitant]
  8. AMLODIPINE [Concomitant]
  9. ATORVASTATIN [Concomitant]
  10. OXYCODONE [Concomitant]

REACTIONS (8)
  - Benign neoplasm of spinal cord [None]
  - Crying [None]
  - Feeling abnormal [None]
  - Insomnia [None]
  - Amnesia [None]
  - Continuous positive airway pressure [None]
  - Cataplexy [None]
  - Stress [None]
